FAERS Safety Report 13826716 (Version 1)
Quarter: 2017Q3

REPORT INFORMATION
  Report Type: Spontaneous
  Country: US (occurrence: US)
  Receive Date: 20170802
  Receipt Date: 20170802
  Transmission Date: 20171127
  Serious: No
  Sender: FDA-Public Use
  Company Number: US-ROCHE-633863

PATIENT
  Age: 78 Year
  Sex: Female
  Weight: 59 kg

DRUGS (6)
  1. ASA [Concomitant]
     Active Substance: ASPIRIN
     Route: 048
  2. POTASSIUM [Concomitant]
     Active Substance: POTASSIUM
     Dosage: FREQUENCY: DAILY
     Route: 048
  3. VITAMIN SUPPLEMENTS [Concomitant]
     Active Substance: VITAMINS
     Dosage: FREQUENCY: DAILY, DRUG NAME: VIT SUPP. B, E
     Route: 048
  4. CA++ [Concomitant]
     Dosage: DRUG NAME: CA++ 2000 MG D 1000 MG, FREQUENCY: DAILY
     Route: 048
  5. BONIVA [Suspect]
     Active Substance: IBANDRONATE SODIUM
     Indication: OSTEOPOROSIS
     Route: 048
  6. LIPITOR [Concomitant]
     Active Substance: ATORVASTATIN CALCIUM
     Indication: HYPERCHOLESTEROLAEMIA
     Route: 048

REACTIONS (1)
  - Sensitivity of teeth [Recovered/Resolved]

NARRATIVE: CASE EVENT DATE: 200902
